FAERS Safety Report 15201600 (Version 1)
Quarter: 2018Q3

REPORT INFORMATION
  Report Type: Spontaneous
  Country: US (occurrence: US)
  Receive Date: 20180726
  Receipt Date: 20180726
  Transmission Date: 20181010
  Serious: No
  Sender: FDA-Public Use
  Company Number: US-ACCORD-061904

PATIENT
  Age: 74 Year
  Sex: Female
  Weight: 73.48 kg

DRUGS (2)
  1. CEFALEXIN [Concomitant]
     Active Substance: CEPHALEXIN
     Indication: SKIN INFECTION
  2. LETROZOLE ACCORD [Suspect]
     Active Substance: LETROZOLE
     Indication: ENDOMETRIAL CANCER
     Dosage: FREQUENCY: QD
     Route: 048
     Dates: start: 20171122

REACTIONS (3)
  - Hot flush [Unknown]
  - Genito-pelvic pain/penetration disorder [Unknown]
  - Off label use [Unknown]

NARRATIVE: CASE EVENT DATE: 20171122
